FAERS Safety Report 6602450-1 (Version None)
Quarter: 2010Q1

REPORT INFORMATION
  Report Type: 
  Country: None (occurrence: None)
  Receive Date: 20100225
  Receipt Date: 20100224
  Transmission Date: 20100710
  Serious: Yes (Death, Hospitalization, Other)
  Sender: FDA-Public Use
  Company Number: HQWYE188716JUL04

PATIENT
  Sex: Female

DRUGS (6)
  1. PREMPRO [Suspect]
  2. CYCRIN [Suspect]
  3. MEDROXYPROGESTERONE ACETATE [Suspect]
     Indication: HORMONE REPLACEMENT THERAPY
  4. MEDROXYPROGESTERONE ACETATE [Suspect]
     Indication: MENOPAUSE
  5. PREMARIN [Suspect]
  6. MEDROXYPROGESTERONE ACETATE [Suspect]

REACTIONS (2)
  - ATRIAL FIBRILLATION [None]
  - BREAST CANCER METASTATIC [None]
